FAERS Safety Report 25471230 (Version 1)
Quarter: 2025Q2

REPORT INFORMATION
  Report Type: Spontaneous
  Country: IL (occurrence: IL)
  Receive Date: 20250624
  Receipt Date: 20250624
  Transmission Date: 20250716
  Serious: Yes (Other)
  Sender: MERCK SHARP & DOHME LLC
  Company Number: IL-009507513-2297924

PATIENT
  Age: 60 Year
  Sex: Male

DRUGS (1)
  1. PEMBROLIZUMAB [Suspect]
     Active Substance: PEMBROLIZUMAB
     Indication: Squamous cell carcinoma of the tongue
     Dosage: 200 MG, IV Q3W FOR TWO CYCLES
     Route: 042
     Dates: start: 2025, end: 2025

REACTIONS (2)
  - Metastases to nervous system [Unknown]
  - Off label use [Unknown]

NARRATIVE: CASE EVENT DATE: 20250101
